FAERS Safety Report 9161064 (Version 1)
Quarter: 2013Q1

REPORT INFORMATION
  Report Type: Report from Study
  Country: GB (occurrence: GB)
  Receive Date: 20130313
  Receipt Date: 20130313
  Transmission Date: 20140127
  Serious: Yes (Other)
  Sender: FDA-Public Use
  Company Number: GB-VERTEX PHARMACEUTICALS INC.-2013-003450

PATIENT
  Age: 53 Year
  Sex: Male

DRUGS (11)
  1. VX-950 (TELAPREVIR) [Suspect]
     Indication: HEPATITIS C
     Dosage: 750 MG, UNK
     Route: 048
     Dates: start: 20130109
  2. HEART MEDICATION [Interacting]
     Indication: CARDIAC DISORDER
     Dosage: DOSAGE FORM: UNKNOWN
     Route: 065
  3. WARFARIN [Concomitant]
  4. NEXIUM [Concomitant]
  5. ZOPICLONE [Concomitant]
  6. FRUSEMIDE (FUROSEMIDE) [Concomitant]
  7. CLOPIDOGREL [Concomitant]
  8. RAMIPRIL [Concomitant]
  9. ASTHMA MEDICATION NOS [Concomitant]
     Dosage: DOSAGE FORM: UNSPECIFIED
     Route: 065
  10. INHALERS NOS [Concomitant]
     Dosage: DOSAGE FORM: UNSPECIFIED
     Route: 065
  11. HIV MEDICATION [Concomitant]
     Dosage: DOSAGE FORM: UNSPECIFIED
     Route: 065

REACTIONS (3)
  - Drug interaction [Unknown]
  - Dyspnoea [Not Recovered/Not Resolved]
  - Contraindication to medical treatment [None]
